FAERS Safety Report 15770510 (Version 1)
Quarter: 2018Q4

REPORT INFORMATION
  Report Type: Spontaneous
  Country: US (occurrence: US)
  Receive Date: 20181228
  Receipt Date: 20181228
  Transmission Date: 20190205
  Serious: Yes (Life-Threatening, Hospitalization)
  Sender: FDA-Public Use
  Company Number: US-ASTRAZENECA-2018SF71129

PATIENT
  Age: 81 Year
  Sex: Male

DRUGS (8)
  1. OXYGEN. [Concomitant]
     Active Substance: OXYGEN
     Dosage: UNK
  2. IMIPENEM [Concomitant]
     Active Substance: IMIPENEM
     Dosage: UNK
  3. BREO ELLIPTA [Concomitant]
     Active Substance: FLUTICASONE FUROATE\VILANTEROL TRIFENATATE
     Dosage: UNK
     Route: 055
  4. MEROPENEM. [Suspect]
     Active Substance: MEROPENEM
     Dosage: UNK
     Route: 042
  5. TUDORZA PRESSAIR [Suspect]
     Active Substance: ACLIDINIUM BROMIDE
     Indication: CHRONIC OBSTRUCTIVE PULMONARY DISEASE
     Route: 055
  6. SEREVENT DISKUS [Concomitant]
     Active Substance: SALMETEROL XINAFOATE
     Dosage: UNK
  7. ANIMAXEN [Concomitant]
     Dosage: UNK
  8. TRELEGY ELLIPTA [Concomitant]
     Active Substance: FLUTICASONE FUROATE\UMECLIDINIUM BROMIDE\VILANTEROL TRIFENATATE
     Dosage: UNK

REACTIONS (5)
  - Malaise [Unknown]
  - Dyspnoea [Unknown]
  - Pyrexia [Unknown]
  - Choking [Unknown]
  - Sleep apnoea syndrome [Unknown]
